FAERS Safety Report 9925164 (Version 2)
Quarter: 2014Q1

REPORT INFORMATION
  Report Type: Spontaneous
  Country: US (occurrence: US)
  Receive Date: 20140226
  Receipt Date: 20140320
  Transmission Date: 20141002
  Serious: No
  Sender: FDA-Public Use
  Company Number: US-009507513-1402USA012061

PATIENT
  Age: 24 Year
  Sex: Female
  Weight: 95.24 kg

DRUGS (1)
  1. NEXPLANON [Suspect]
     Indication: CONTRACEPTION
     Dosage: 1 ROD
     Route: 059
     Dates: start: 20131115, end: 20140219

REACTIONS (4)
  - Implant site pain [Recovered/Resolved]
  - Implant site irritation [Recovered/Resolved]
  - Device breakage [Recovered/Resolved]
  - Product quality issue [Unknown]
